FAERS Safety Report 9422500 (Version 1)
Quarter: 2013Q3

REPORT INFORMATION
  Report Type: Spontaneous
  Country: US (occurrence: US)
  Receive Date: 20130724
  Receipt Date: 20130724
  Transmission Date: 20140515
  Serious: Yes (Death)
  Sender: FDA-Public Use
  Company Number: AXC-2013-000331

PATIENT
  Age: 32 Year
  Sex: Male
  Weight: 70.3 kg

DRUGS (1)
  1. ZENPEP [Suspect]
     Indication: CYSTIC FIBROSIS
     Dosage: 8 CAPSULES W/3 MEALS PER DAY; ALSO 5-6 CAPSULES WITH 2-3 SNACKS PER DAY.
     Route: 048

REACTIONS (2)
  - Cystic fibrosis [None]
  - Disease progression [None]
